FAERS Safety Report 8331422-4 (Version None)
Quarter: 2012Q2

REPORT INFORMATION
  Report Type: 
  Country: None (occurrence: None)
  Receive Date: 20120502
  Receipt Date: 20120417
  Transmission Date: 20120825
  Serious: No
  Sender: FDA-Public Use
  Company Number: US-AMGEN-USASP2012024260

PATIENT
  Age: 43 Year
  Sex: Male

DRUGS (1)
  1. ENBREL [Suspect]
     Indication: ANKYLOSING SPONDYLITIS
     Dosage: 50 MG, ONCE IN 10 DAYS
     Dates: start: 20110912

REACTIONS (4)
  - TOOTHACHE [None]
  - DEVICE FAILURE [None]
  - TOOTH FRACTURE [None]
  - ANKYLOSING SPONDYLITIS [None]
